FAERS Safety Report 10792183 (Version 1)
Quarter: 2015Q1

REPORT INFORMATION
  Report Type: Report from Study
  Country: CA (occurrence: CA)
  Receive Date: 20150213
  Receipt Date: 20150213
  Transmission Date: 20150721
  Serious: Yes (Hospitalization)
  Sender: FDA-Public Use
  Company Number: CA-ASTRAZENECA-2015SE13023

PATIENT
  Age: 83 Year
  Sex: Female
  Weight: 70.3 kg

DRUGS (23)
  1. COMBIGAN [Concomitant]
     Active Substance: BRIMONIDINE TARTRATE\TIMOLOL MALEATE
     Dates: start: 2007
  2. ACETAMINOPHEN. [Concomitant]
     Active Substance: ACETAMINOPHEN
     Dates: start: 20140206
  3. CELECOXIB: IBUPROFEN/ NAPROXEN [Suspect]
     Active Substance: CELECOXIB\IBUPROFEN\NAPROXEN
     Indication: OSTEOARTHRITIS
     Dosage: THREE TIMES A DAY
     Route: 048
     Dates: start: 20130130, end: 20140815
  4. METFORMIN [Concomitant]
     Active Substance: METFORMIN HYDROCHLORIDE
     Dates: start: 20140314
  5. VITAMIN B12 [Concomitant]
     Active Substance: CYANOCOBALAMIN
     Dates: start: 20140620
  6. TIMOLOL XE [Concomitant]
     Dates: start: 20130408
  7. LUMIGAN [Concomitant]
     Active Substance: BIMATOPROST
     Dates: start: 2007
  8. TICAGRELOR [Suspect]
     Active Substance: TICAGRELOR
     Indication: MYOCARDIAL INFARCTION
     Route: 048
     Dates: start: 20140910, end: 20140920
  9. DIAMICRON MR [Concomitant]
     Active Substance: GLICLAZIDE
     Dates: start: 20140620
  10. GABAPENTIN. [Concomitant]
     Active Substance: GABAPENTIN
     Dates: start: 20140206
  11. FERROUS SULFATE [Concomitant]
     Active Substance: FERROUS SULFATE\FERROUS SULFATE, DRIED
     Dates: start: 20140728, end: 20140920
  12. CHOLECALCIFEROL [Concomitant]
     Active Substance: CHOLECALCIFEROL
     Dates: start: 2010
  13. NEXIUM [Suspect]
     Active Substance: ESOMEPRAZOLE MAGNESIUM
     Route: 048
  14. DETROL LA [Concomitant]
     Active Substance: TOLTERODINE TARTRATE
     Dates: start: 2009
  15. METOPROLOL [Concomitant]
     Active Substance: METOPROLOL
     Dates: start: 20140131
  16. ATIVAN [Concomitant]
     Active Substance: LORAZEPAM
     Dates: start: 20140127
  17. FUROSEMIDE. [Concomitant]
     Active Substance: FUROSEMIDE
     Dates: start: 20140203
  18. JAMP K 20 [Concomitant]
     Dates: start: 20140210
  19. CAL 500 [Concomitant]
     Dates: start: 2010
  20. ASAPHEN [Concomitant]
     Active Substance: ASPIRIN
     Dates: start: 20140910
  21. ROSUVASTATIN [Concomitant]
     Active Substance: ROSUVASTATIN
     Dates: start: 20140206
  22. PANTOPRAZOLE [Concomitant]
     Active Substance: PANTOPRAZOLE SODIUM
     Dates: start: 20140620
  23. NITRO [Concomitant]
     Active Substance: NITROGLYCERIN
     Dates: start: 20140123

REACTIONS (2)
  - Anaemia [Recovered/Resolved]
  - Syncope [None]

NARRATIVE: CASE EVENT DATE: 20140920
